FAERS Safety Report 9880290 (Version 1)
Quarter: 2014Q1

REPORT INFORMATION
  Report Type: Report from Study
  Country: US (occurrence: US)
  Receive Date: 20140207
  Receipt Date: 20140207
  Transmission Date: 20141002
  Serious: Yes (Hospitalization)
  Sender: FDA-Public Use
  Company Number: US-ROCHE-1342277

PATIENT
  Age: 58 Year
  Sex: Female
  Weight: 53.57 kg

DRUGS (2)
  1. HERCEPTIN [Suspect]
     Indication: BREAST CANCER
     Route: 042
     Dates: start: 201207, end: 20130401
  2. TAMOXIFEN [Concomitant]
     Route: 048
     Dates: start: 201209

REACTIONS (5)
  - Atrioventricular block complete [Recovering/Resolving]
  - Fatigue [Unknown]
  - Asthenia [Unknown]
  - Dizziness [Unknown]
  - Ejection fraction decreased [Recovering/Resolving]
